FAERS Safety Report 22226889 (Version 3)
Quarter: 2025Q4

REPORT INFORMATION
  Report Type: Report from Study
  Country: CA (occurrence: CA)
  Receive Date: 20230419
  Receipt Date: 20251014
  Transmission Date: 20260118
  Serious: Yes (Other)
  Sender: TAKEDA
  Company Number: CA-TAKEDA-2021TUS034987

PATIENT
  Age: 33 Year
  Sex: Male

DRUGS (6)
  1. VEDOLIZUMAB [Suspect]
     Active Substance: VEDOLIZUMAB
     Indication: Crohn^s disease
     Dosage: 300 MILLIGRAM
  2. VEDOLIZUMAB [Suspect]
     Active Substance: VEDOLIZUMAB
     Dosage: 300 MILLIGRAM, Q4WEEKS
     Dates: start: 20210531
  3. VEDOLIZUMAB [Suspect]
     Active Substance: VEDOLIZUMAB
     Indication: Crohn^s disease
     Dosage: 108 MILLIGRAM, Q2WEEKS
     Dates: start: 2023
  4. Salofalk [Concomitant]
     Dosage: UNK UNK, BID
  5. IMURAN [Concomitant]
     Active Substance: AZATHIOPRINE
     Dosage: 25 MILLIGRAM
  6. PENTASA [Concomitant]
     Active Substance: MESALAMINE
     Dosage: UNK

REACTIONS (5)
  - Crohn^s disease [Unknown]
  - Abscess limb [Unknown]
  - Ocular hyperaemia [Unknown]
  - Skin mass [Unknown]
  - Off label use [Unknown]

NARRATIVE: CASE EVENT DATE: 20210531
